FAERS Safety Report 5321551-1 (Version None)
Quarter: 2007Q2

REPORT INFORMATION
  Report Type: 
  Country: None (occurrence: None)
  Receive Date: 20070220
  Receipt Date: 20061102
  Transmission Date: 20071010
  Serious: No
  Sender: FDA-Public Use
  Company Number: TPA2006A01965

PATIENT
  Age: 34 Year
  Sex: Female
  Weight: 68.4932 kg

DRUGS (8)
  1. ROZEREM [Suspect]
     Indication: INSOMNIA
     Dosage: 8 MG, QHS, PER ORAL
     Route: 048
     Dates: start: 20060930
  2. RISPERDAL [Concomitant]
  3. EFFEXOR [Concomitant]
  4. TOPAMAX [Concomitant]
  5. WELLBUTRIN [Concomitant]
  6. LAMICTAL [Concomitant]
  7. CLARITIN-D [Concomitant]
  8. ZANTAC [Concomitant]

REACTIONS (1)
  - DRUG SCREEN POSITIVE [None]
